FAERS Safety Report 12179284 (Version 1)
Quarter: 2016Q1

REPORT INFORMATION
  Report Type: Spontaneous
  Country: US (occurrence: US)
  Receive Date: 20160314
  Receipt Date: 20160314
  Transmission Date: 20160526
  Serious: Yes (Death, Hospitalization)
  Sender: FDA-Public Use
  Company Number: US-PFIZER INC-2016138541

PATIENT
  Age: 44 Year
  Sex: Female

DRUGS (3)
  1. CORTISONE ACETATE. [Suspect]
     Active Substance: CORTISONE ACETATE
     Dosage: 200 MG, DAILY
     Route: 030
     Dates: start: 195005
  2. CORTISONE ACETATE. [Suspect]
     Active Substance: CORTISONE ACETATE
     Indication: WEBER-CHRISTIAN DISEASE
     Dosage: 100 MG, FOR FIVE DAYS
     Route: 030
     Dates: start: 19500505
  3. CORTISONE ACETATE. [Suspect]
     Active Substance: CORTISONE ACETATE
     Dosage: UNK UNK, DAILY (AVERAGE OF 100 MG)
     Route: 030
     Dates: start: 1950, end: 19500610

REACTIONS (4)
  - Cushingoid [Unknown]
  - Meningitis tuberculous [Fatal]
  - Acne [Unknown]
  - Drug ineffective [Unknown]

NARRATIVE: CASE EVENT DATE: 1950
